FAERS Safety Report 15675017 (Version 1)
Quarter: 2018Q4

REPORT INFORMATION
  Report Type: Spontaneous
  Country: US (occurrence: US)
  Receive Date: 20181129
  Receipt Date: 20181129
  Transmission Date: 20190205
  Serious: Yes (Other)
  Sender: FDA-Public Use
  Company Number: None

PATIENT
  Age: 36 Year
  Sex: Female
  Weight: 52.2 kg

DRUGS (3)
  1. MULTIVITAMIN [Concomitant]
     Active Substance: VITAMINS
  2. ASPIRIN. [Concomitant]
     Active Substance: ASPIRIN
  3. MONTELUKAST FOR SINGULAIR [Suspect]
     Active Substance: MONTELUKAST SODIUM
     Indication: ASTHMA PROPHYLAXIS
     Dosage: ?          QUANTITY:1 TABLET(S);?
     Route: 048
     Dates: start: 20181124, end: 20181129

REACTIONS (1)
  - Drug ineffective [None]

NARRATIVE: CASE EVENT DATE: 20181129
